FAERS Safety Report 16516454 (Version 2)
Quarter: 2019Q4

REPORT INFORMATION
  Report Type: Spontaneous
  Country: FR (occurrence: FR)
  Receive Date: 20190702
  Receipt Date: 20191114
  Transmission Date: 20200122
  Serious: Yes (Other)
  Sender: FDA-Public Use
  Company Number: FR-MYLANLABS-2019M1060611

PATIENT
  Age: 41 Year
  Sex: Female

DRUGS (22)
  1. ZOPHREN                            /00955302/ [Concomitant]
     Active Substance: ONDANSETRON
     Dosage: 8 MILLIGRAM, TOTAL
     Route: 042
     Dates: start: 20111207, end: 20111207
  2. DOCETAXEL. [Suspect]
     Active Substance: DOCETAXEL
     Dosage: DOCETAXEL
     Dates: start: 20120104, end: 20120104
  3. DEXAMETHASONE. [Concomitant]
     Active Substance: DEXAMETHASONE
     Dosage: 8 MILLIGRAM, QD
     Route: 048
     Dates: start: 20120104, end: 20120105
  4. DEXAMETHASONE. [Concomitant]
     Active Substance: DEXAMETHASONE
     Dosage: 8 MILLIGRAM, QD
     Route: 048
     Dates: start: 20120125, end: 20120125
  5. EPIRUBICIN [Suspect]
     Active Substance: EPIRUBICIN
     Indication: PRODUCT USED FOR UNKNOWN INDICATION
     Dosage: 180 MILLIGRAM, TOTAL
     Dates: start: 20111026, end: 20111026
  6. EPIRUBICIN [Suspect]
     Active Substance: EPIRUBICIN
     Dosage: 180 MILLIGRAM, TOTAL
     Dates: start: 20111207, end: 20111207
  7. DOCETAXEL. [Suspect]
     Active Substance: DOCETAXEL
     Indication: BREAST CANCER FEMALE
     Dosage: UNK UNK, TOTAL
     Dates: start: 20111026, end: 20120215
  8. CYCLOPHOSPHAMIDE. [Suspect]
     Active Substance: CYCLOPHOSPHAMIDE
     Dosage: 900 MILLIGRAM, QD
     Dates: start: 20111026, end: 20111026
  9. FLUOROURACIL MYLAN [Suspect]
     Active Substance: FLUOROURACIL
     Dosage: 900 MILLIGRAM, TOTAL
     Route: 042
     Dates: start: 20111116, end: 20111116
  10. DOCETAXEL. [Suspect]
     Active Substance: DOCETAXEL
     Dosage: 180 MILLIGRAM, TOTAL
     Dates: start: 20120125, end: 20120125
  11. DEXAMETHASONE. [Concomitant]
     Active Substance: DEXAMETHASONE
     Dosage: 8 MILLIGRAM, QD
     Route: 048
     Dates: start: 20120215, end: 20120215
  12. ZOPHREN                            /00955302/ [Concomitant]
     Active Substance: ONDANSETRON
     Dosage: 8 MILLIGRAM, TOTAL
     Route: 042
     Dates: start: 20120104, end: 20120104
  13. DOCETAXEL. [Suspect]
     Active Substance: DOCETAXEL
     Dosage: 180 MILLIGRAM, TOTAL
     Dates: start: 20120215, end: 20120215
  14. NOLVADEX D [Suspect]
     Active Substance: TAMOXIFEN CITRATE
     Indication: BREAST CANCER FEMALE
     Dosage: UNK
     Dates: start: 20120501
  15. FLUOROURACIL MYLAN [Suspect]
     Active Substance: FLUOROURACIL
     Dosage: 900 MILLIGRAM, TOTAL
     Route: 042
     Dates: start: 20111026, end: 20111026
  16. TAXOTERE [Suspect]
     Active Substance: DOCETAXEL
     Indication: PRODUCT USED FOR UNKNOWN INDICATION
     Dosage: 3 COURSES
  17. ZOPHREN                            /00955302/ [Concomitant]
     Active Substance: ONDANSETRON
     Dosage: 8 MILLIGRAM, TOTAL
     Route: 042
     Dates: start: 20111116, end: 20111116
  18. TAMOXIFEN [Suspect]
     Active Substance: TAMOXIFEN
     Indication: PRODUCT USED FOR UNKNOWN INDICATION
     Dosage: 8 MILLIGRAM, TOTAL
     Dates: start: 2011
  19. CYCLOPHOSPHAMIDE. [Suspect]
     Active Substance: CYCLOPHOSPHAMIDE
     Indication: PRODUCT USED FOR UNKNOWN INDICATION
     Dosage: 3 COURSES
     Dates: start: 20111207, end: 20111207
  20. CYCLOPHOSPHAMIDE. [Suspect]
     Active Substance: CYCLOPHOSPHAMIDE
     Dosage: 900 MILLIGRAM, QD
     Dates: start: 20111116, end: 20111116
  21. ZOPHREN                            /00955302/ [Concomitant]
     Active Substance: ONDANSETRON
     Dosage: 8 MILLIGRAM, TOTAL
     Route: 042
     Dates: start: 20120215, end: 20120215
  22. ZOPHREN                            /00955302/ [Concomitant]
     Active Substance: ONDANSETRON
     Dosage: 8 MILLIGRAM, TOTAL
     Route: 042
     Dates: start: 20111026, end: 20111026

REACTIONS (43)
  - Hallucination [Unknown]
  - Neuralgia [Unknown]
  - Cognitive disorder [Unknown]
  - Dizziness [Unknown]
  - Chills [Unknown]
  - Arthralgia [Unknown]
  - Tetany [Unknown]
  - Muscle contracture [Unknown]
  - Paraesthesia [Unknown]
  - Vomiting [Unknown]
  - Menorrhagia [Unknown]
  - Pain in extremity [Unknown]
  - Sensory loss [Unknown]
  - Tooth disorder [Unknown]
  - Muscle spasms [Unknown]
  - Insomnia [Unknown]
  - Mucosal toxicity [Unknown]
  - Facial pain [Unknown]
  - Visual acuity reduced [Unknown]
  - Hot flush [Unknown]
  - Platelet count decreased [Unknown]
  - Emotional disorder [Unknown]
  - Weight increased [Recovering/Resolving]
  - Tinnitus [Unknown]
  - Pain [Unknown]
  - Herpes zoster [Unknown]
  - Hepatocellular injury [Recovering/Resolving]
  - Pathological fracture [Unknown]
  - Vulvovaginal dryness [Unknown]
  - Dysstasia [Unknown]
  - Gait disturbance [Unknown]
  - Visual impairment [Unknown]
  - Nausea [Unknown]
  - Skin sensitisation [Unknown]
  - Loss of libido [Unknown]
  - Depressive symptom [Unknown]
  - Skin toxicity [Unknown]
  - Fatigue [Unknown]
  - Disturbance in attention [Unknown]
  - Neuropathy peripheral [Unknown]
  - Gingival pain [Unknown]
  - Ageusia [Unknown]
  - Periostitis [Unknown]

NARRATIVE: CASE EVENT DATE: 20111017
